FAERS Safety Report 6313049-9 (Version None)
Quarter: 2009Q3

REPORT INFORMATION
  Report Type: 
  Country: None (occurrence: None)
  Receive Date: 20090818
  Receipt Date: 20090810
  Transmission Date: 20100115
  Serious: Yes (Hospitalization)
  Sender: FDA-Public Use
  Company Number: US-ASTRAZENECA-2009SE07636

PATIENT
  Sex: Female

DRUGS (5)
  1. NEXIUM [Suspect]
     Route: 048
     Dates: start: 20020101
  2. VALIUM [Concomitant]
     Indication: ANXIETY
     Route: 048
  3. GRAVOL TAB [Concomitant]
     Indication: SLEEP DISORDER
     Route: 048
  4. PANTOPRAZOLE SODIUM [Concomitant]
     Route: 042
  5. PANTOPRAZOLE SODIUM [Concomitant]
     Route: 048

REACTIONS (14)
  - ABDOMINAL PAIN [None]
  - ANXIETY [None]
  - CONFUSIONAL STATE [None]
  - DECREASED APPETITE [None]
  - DEPRESSION [None]
  - FATIGUE [None]
  - GASTROOESOPHAGEAL REFLUX DISEASE [None]
  - INFECTION [None]
  - MULTIPLE ALLERGIES [None]
  - PHARYNGITIS [None]
  - ROSACEA [None]
  - SINUSITIS [None]
  - VERTIGO [None]
  - WHITE BLOOD CELL COUNT DECREASED [None]
